FAERS Safety Report 6992968-4 (Version None)
Quarter: 2010Q3

REPORT INFORMATION
  Report Type: 
  Country: None (occurrence: None)
  Receive Date: 20100917
  Receipt Date: 20100908
  Transmission Date: 20110219
  Serious: Yes (Hospitalization)
  Sender: FDA-Public Use
  Company Number: JP-WYE-H17450610

PATIENT
  Sex: Male

DRUGS (14)
  1. ZOSYN [Suspect]
     Indication: CYSTITIS
     Dosage: 4.5 GRAMS (ONE DOSE)
     Route: 041
     Dates: start: 20100907, end: 20100907
  2. PROSTAL [Concomitant]
     Dosage: UNKNOWN
     Route: 048
  3. TAMSULOSIN HCL [Concomitant]
     Dosage: UNKNOWN
     Route: 048
  4. CERNILTON [Concomitant]
     Dosage: UNKNOWN
     Route: 048
  5. DIOVAN [Concomitant]
     Dosage: UNKNOWN
     Route: 048
  6. TORASEMIDE [Concomitant]
  7. ACARDI [Concomitant]
     Dosage: UNKNOWN
     Route: 048
  8. LASIX [Concomitant]
     Dosage: UNKNOWN
  9. DIART [Concomitant]
     Dosage: UNKNOWN
     Route: 048
  10. ASPIRIN [Concomitant]
     Dosage: UNKNOWN
     Route: 048
  11. AMARYL [Concomitant]
     Dosage: UNKNOWN
     Route: 048
  12. VOGLIBOSE [Concomitant]
     Dosage: UNKNOWN
     Route: 048
  13. CARVEDILOL [Concomitant]
     Dosage: UNKNOWN
     Route: 048
     Dates: end: 20100907
  14. AMLODIPINE [Concomitant]

REACTIONS (3)
  - ANAPHYLACTIC SHOCK [None]
  - DYSPNOEA [None]
  - WHEEZING [None]
